FAERS Safety Report 9927516 (Version 1)
Quarter: 2014Q1

REPORT INFORMATION
  Report Type: Spontaneous
  Country: US (occurrence: US)
  Receive Date: 20140227
  Receipt Date: 20140227
  Transmission Date: 20141002
  Serious: No
  Sender: FDA-Public Use
  Company Number: US-009507513-1402USA012025

PATIENT
  Age: 17 Year
  Sex: Female
  Weight: 46.26 kg

DRUGS (2)
  1. NEXPLANON [Suspect]
     Indication: CONTRACEPTION
     Dosage: 68 MG, UNK
     Route: 030
     Dates: start: 20140203, end: 20140203
  2. NEXPLANON [Suspect]
     Dosage: UNK
     Route: 059
     Dates: start: 20140203

REACTIONS (3)
  - Hypoaesthesia [Recovered/Resolved]
  - Device deployment issue [Recovered/Resolved]
  - Incorrect route of drug administration [Unknown]
